FAERS Safety Report 5636455-4 (Version None)
Quarter: 2008Q1

REPORT INFORMATION
  Report Type: 
  Country: None (occurrence: None)
  Receive Date: 20080225
  Receipt Date: 20080211
  Transmission Date: 20080703
  Serious: Yes (Other)
  Sender: FDA-Public Use
  Company Number: ES-ELI_LILLY_AND_COMPANY-ES200802003160

PATIENT
  Age: 60 Year
  Sex: Female

DRUGS (1)
  1. FORTEO [Suspect]
     Indication: OSTEOPOROTIC FRACTURE
     Dosage: 20 UG, UNKNOWN
     Route: 058
     Dates: start: 20070201

REACTIONS (4)
  - BLOOD POTASSIUM INCREASED [None]
  - CARCINOEMBRYONIC ANTIGEN INCREASED [None]
  - ECHINOCOCCIASIS [None]
  - WEIGHT DECREASED [None]
